FAERS Safety Report 5009587-1 (Version None)
Quarter: 2006Q2

REPORT INFORMATION
  Report Type: 
  Country: None (occurrence: None)
  Receive Date: 20060524
  Receipt Date: 20060516
  Transmission Date: 20061013
  Serious: Yes (Hospitalization, Other)
  Sender: FDA-Public Use
  Company Number: PHRM2006FR01578

PATIENT
  Age: 81 Year
  Sex: Female

DRUGS (4)
  1. SINEMET [Suspect]
     Indication: PARKINSON'S DISEASE
     Dosage: 1 TAB/DAY
     Route: 048
  2. BROMAZEPAM [Suspect]
     Indication: ANXIETY
     Dosage: 4.5 MG/DAY
     Route: 048
  3. PAROXETINE [Suspect]
     Indication: DYSTHYMIC DISORDER
     Dosage: 20 MG/DAY
     Route: 048
  4. EXELON [Suspect]
     Indication: DEMENTIA ALZHEIMER'S TYPE
     Dosage: 1 CAPS/DAY
     Route: 048

REACTIONS (8)
  - AREFLEXIA [None]
  - CARDIOMEGALY [None]
  - CEREBRAL HAEMATOMA [None]
  - EAR HAEMORRHAGE [None]
  - FALL [None]
  - HEAD INJURY [None]
  - LOSS OF CONSCIOUSNESS [None]
  - SUBARACHNOID HAEMORRHAGE [None]
